FAERS Safety Report 7032236-8 (Version None)
Quarter: 2010Q4

REPORT INFORMATION
  Report Type: 
  Country: None (occurrence: None)
  Receive Date: 20101007
  Receipt Date: 20100319
  Transmission Date: 20110411
  Serious: Yes (Death, Life-Threatening, Hospitalization)
  Sender: FDA-Public Use
  Company Number: US-BRISTOL-MYERS SQUIBB COMPANY-15039985

PATIENT
  Age: 54 Year
  Sex: Female
  Weight: 105 kg

DRUGS (3)
  1. CETUXIMAB [Suspect]
     Indication: NON-SMALL CELL LUNG CANCER
     Dosage: RECENT INF(2ND):05MAR2010
     Route: 042
     Dates: start: 20100204, end: 20100305
  2. CARBOPLATIN [Suspect]
     Indication: NON-SMALL CELL LUNG CANCER
     Dosage: RECENT INF(2ND): 05MAR2010.
     Route: 042
     Dates: start: 20100204, end: 20100305
  3. PEMETREXED DISODIUM [Suspect]
     Indication: NON-SMALL CELL LUNG CANCER
     Dosage: RECENT INF(2ND): 05MAR2010.
     Route: 042
     Dates: start: 20100204, end: 20100305

REACTIONS (2)
  - MALIGNANT NEOPLASM PROGRESSION [None]
  - PANCYTOPENIA [None]
